FAERS Safety Report 4516093-7 (Version None)
Quarter: 2004Q4

REPORT INFORMATION
  Report Type: 
  Country: None (occurrence: None)
  Receive Date: 20041129
  Receipt Date: 20041115
  Transmission Date: 20050328
  Serious: Yes (Life-Threatening, Hospitalization, Disabling, Other)
  Sender: FDA-Public Use
  Company Number: 2004242965JP

PATIENT
  Age: 54 Year
  Sex: Female

DRUGS (3)
  1. AROMASIN [Suspect]
     Indication: BREAST CANCER FEMALE
     Dosage: 25 MG (25 MG), ORAL
     Route: 048
     Dates: start: 20040809, end: 20041015
  2. PAMIDRONATE DISODIUM [Suspect]
     Indication: METASTASES TO BONE
     Dosage: (90 MCG), INTRAVENOUS
     Route: 042
     Dates: start: 20040517, end: 20041004
  3. LOXOPROFEN SODIUM (LOXOPROFEN SODIUM) [Suspect]
     Indication: BONE PAIN
     Dosage: 180 MCG (60 MCG, THREE TIMES DAILY), ORAL
     Route: 048
     Dates: start: 20040921, end: 20041014

REACTIONS (10)
  - ASTERIXIS [None]
  - BLOOD TEST ABNORMAL [None]
  - BONE PAIN [None]
  - CHOLELITHIASIS [None]
  - CONDITION AGGRAVATED [None]
  - DRUG INEFFECTIVE [None]
  - HEPATIC ENCEPHALOPATHY [None]
  - HEPATITIS FULMINANT [None]
  - METASTASES TO BONE [None]
  - PLASMAPHERESIS [None]
